FAERS Safety Report 7012150-4 (Version None)
Quarter: 2010Q3

REPORT INFORMATION
  Report Type: 
  Country: None (occurrence: None)
  Receive Date: 20100922
  Receipt Date: 20100922
  Transmission Date: 20110219
  Serious: Yes (Other)
  Sender: FDA-Public Use
  Company Number: None

PATIENT
  Age: 59 Year
  Sex: Female
  Weight: 47.1741 kg

DRUGS (1)
  1. GABAPENTIN [Suspect]
     Indication: HERPES ZOSTER
     Dosage: 300MG 3X DAILY ORAL
     Route: 048
     Dates: start: 20100628, end: 20100707

REACTIONS (20)
  - ASTHENIA [None]
  - BALANCE DISORDER [None]
  - BLOOD PRESSURE [None]
  - BRONCHITIS [None]
  - CONFUSIONAL STATE [None]
  - DEPRESSION [None]
  - DISORIENTATION [None]
  - DRY MOUTH [None]
  - DYSPHAGIA [None]
  - FALL [None]
  - FATIGUE [None]
  - GAIT DISTURBANCE [None]
  - HERPES ZOSTER [None]
  - MUSCLE SPASMS [None]
  - MYALGIA [None]
  - NAUSEA [None]
  - NEURALGIA [None]
  - THROAT TIGHTNESS [None]
  - VISION BLURRED [None]
  - WEIGHT DECREASED [None]
